FAERS Safety Report 21364926 (Version 1)
Quarter: 2022Q3

REPORT INFORMATION
  Report Type: Spontaneous
  Country: US (occurrence: US)
  Receive Date: 20220922
  Receipt Date: 20220922
  Transmission Date: 20221027
  Serious: No
  Sender: FDA-Public Use
  Company Number: US-CURIUM-2022000644

PATIENT

DRUGS (6)
  1. IOFLUPANE I-123 [Suspect]
     Active Substance: IOFLUPANE I-123
     Indication: Scan brain
     Route: 042
     Dates: start: 20220824, end: 20220824
  2. PAROXETINE [Concomitant]
     Active Substance: PAROXETINE
     Indication: Product used for unknown indication
     Route: 065
  3. ALPRAZOLAM [Concomitant]
     Active Substance: ALPRAZOLAM
     Indication: Product used for unknown indication
     Route: 065
  4. DONEPEZIL [Concomitant]
     Active Substance: DONEPEZIL
     Indication: Product used for unknown indication
     Route: 065
  5. LAMOTRIGINE [Concomitant]
     Active Substance: LAMOTRIGINE
     Indication: Product used for unknown indication
     Route: 065
  6. VALIUM [Concomitant]
     Active Substance: DIAZEPAM
     Indication: Product used for unknown indication
     Route: 065
     Dates: start: 20220824, end: 20220824

REACTIONS (1)
  - Brain scan abnormal [Recovered/Resolved]

NARRATIVE: CASE EVENT DATE: 20220824
